FAERS Safety Report 5039019-9 (Version None)
Quarter: 2006Q2

REPORT INFORMATION
  Report Type: 
  Country: None (occurrence: None)
  Receive Date: 20060629
  Receipt Date: 20060526
  Transmission Date: 20061013
  Serious: Yes (Disabling)
  Sender: FDA-Public Use
  Company Number: US-MERCK-0605USA04949

PATIENT
  Age: 45 Year
  Sex: Female
  Weight: 59 kg

DRUGS (9)
  1. FOSAMAX [Suspect]
     Indication: FRACTURE
     Route: 048
     Dates: start: 20060101
  2. ASPIRIN [Concomitant]
     Route: 048
  3. LOVASTATIN [Concomitant]
     Route: 048
  4. NIFEDIPINE [Concomitant]
     Route: 048
  5. DILANTIN [Concomitant]
     Route: 048
  6. KEPPRA [Concomitant]
     Route: 048
  7. GLYCOPYRROLATE [Concomitant]
     Route: 048
  8. POTASSIUM CHLORIDE [Concomitant]
     Route: 048
  9. PRIMIDONE [Concomitant]
     Route: 048

REACTIONS (1)
  - VENOUS THROMBOSIS [None]
